FAERS Safety Report 11290524 (Version 2)
Quarter: 2015Q3

REPORT INFORMATION
  Report Type: Spontaneous
  Country: BG (occurrence: BG)
  Receive Date: 20150722
  Receipt Date: 20150922
  Transmission Date: 20151125
  Serious: Yes (Hospitalization)
  Sender: FDA-Public Use
  Company Number: BG-ASTRAZENECA-2015SE69237

PATIENT
  Age: 77 Year
  Sex: Male

DRUGS (15)
  1. FUROSEMIDE. [Concomitant]
     Active Substance: FUROSEMIDE
  2. TORASEMIDE [Concomitant]
     Active Substance: TORSEMIDE
  3. RAMIPRIL. [Concomitant]
     Active Substance: RAMIPRIL
  4. HEPARIN [Concomitant]
     Active Substance: HEPARIN SODIUM
     Dosage: 5000 E
  5. BISOPROLOL [Concomitant]
     Active Substance: BISOPROLOL
  6. PANTOPRAZOLE [Concomitant]
     Active Substance: PANTOPRAZOLE SODIUM
  7. ROSUVASTATIN [Suspect]
     Active Substance: ROSUVASTATIN
     Route: 048
  8. CLOPIDOGREL [Concomitant]
     Active Substance: CLOPIDOGREL BISULFATE
  9. ACETYLSALICYLIC ACID [Concomitant]
     Active Substance: ASPIRIN
  10. INSULIN [Concomitant]
     Active Substance: INSULIN NOS
  11. TICAGRELOR [Suspect]
     Active Substance: TICAGRELOR
     Route: 048
  12. FUROSEMIDE. [Concomitant]
     Active Substance: FUROSEMIDE
  13. SPIRONOLACTONE. [Concomitant]
     Active Substance: SPIRONOLACTONE
  14. CLOPIDOGREL [Concomitant]
     Active Substance: CLOPIDOGREL BISULFATE
  15. RAMIPRIL. [Concomitant]
     Active Substance: RAMIPRIL
     Dosage: 2X5 MG

REACTIONS (3)
  - Respiratory failure [Unknown]
  - Pulmonary congestion [Unknown]
  - Coronary artery stenosis [Unknown]
